FAERS Safety Report 8556017-9 (Version None)
Quarter: 2012Q3

REPORT INFORMATION
  Report Type: 
  Country: None (occurrence: None)
  Receive Date: 20120801
  Receipt Date: 20120724
  Transmission Date: 20120928
  Serious: No
  Sender: FDA-Public Use
  Company Number: US-B.I. PHARMACEUTICALS,INC./RIDGEFIELD-2012-BP-16430BP

PATIENT
  Sex: Female

DRUGS (9)
  1. ALBUTEROL [Concomitant]
     Indication: ASTHMA
  2. ADVAIR [Concomitant]
     Indication: CHRONIC OBSTRUCTIVE PULMONARY DISEASE
     Route: 055
     Dates: start: 20111001
  3. VENTOLIN HFA [Concomitant]
     Indication: ASTHMA
  4. SPIRIVA [Suspect]
     Indication: CHRONIC OBSTRUCTIVE PULMONARY DISEASE
     Dosage: 18 MCG
     Route: 055
     Dates: start: 20120401
  5. LEVOTHYROXINE SODIUM [Concomitant]
     Indication: HYPOTHYROIDISM
     Dosage: 5 MG
     Route: 048
     Dates: start: 20010101
  6. ALBUTEROL [Concomitant]
     Indication: CHRONIC OBSTRUCTIVE PULMONARY DISEASE
     Route: 055
     Dates: start: 20111001
  7. VENTOLIN HFA [Concomitant]
     Indication: CHRONIC OBSTRUCTIVE PULMONARY DISEASE
     Route: 055
     Dates: start: 20111001
  8. ADVAIR [Concomitant]
     Indication: ASTHMA
  9. FUROSEMIDE [Concomitant]
     Dosage: 40 MG
     Route: 048

REACTIONS (2)
  - COUGH [None]
  - WHEEZING [None]
